FAERS Safety Report 26001809 (Version 6)
Quarter: 2025Q4

REPORT INFORMATION
  Report Type: Spontaneous
  Country: US (occurrence: US)
  Receive Date: 20251105
  Receipt Date: 20251218
  Transmission Date: 20260117
  Serious: Yes (Hospitalization)
  Sender: ELI LILLY AND COMPANY
  Company Number: US-ELI_LILLY_AND_COMPANY-US202511002036

PATIENT
  Age: 66 Year
  Sex: Female

DRUGS (35)
  1. PEMETREXED [Suspect]
     Active Substance: PEMETREXED
     Indication: Non-small cell lung cancer
     Dosage: 700 MG/M2, CYCLICAL
     Route: 042
     Dates: start: 20240220, end: 20240220
  2. PEMETREXED [Suspect]
     Active Substance: PEMETREXED
     Dosage: 500 MG/M2, CYCLICAL (EVERY THREE WEEKS)
     Route: 042
     Dates: start: 20240312, end: 20240604
  3. PEMETREXED [Suspect]
     Active Substance: PEMETREXED
     Dosage: 500 MG/M2, CYCLICAL
     Route: 042
     Dates: start: 20240917, end: 20240917
  4. PEMETREXED [Suspect]
     Active Substance: PEMETREXED
     Dosage: 375 MG/M2, CYCLICAL
     Route: 042
     Dates: start: 20241008, end: 20241008
  5. PEMETREXED [Suspect]
     Active Substance: PEMETREXED
     Dosage: 375 MG/M2, CYCLICAL (EVERY THREE WEEKS)
     Route: 042
     Dates: start: 20250304, end: 20250415
  6. PEMETREXED [Suspect]
     Active Substance: PEMETREXED
     Dosage: 375 MG/M2, CYCLICAL
     Route: 042
     Dates: start: 20250624, end: 20250624
  7. PEMETREXED [Suspect]
     Active Substance: PEMETREXED
     Dosage: 375 MG/M2, CYCLICAL
     Route: 042
     Dates: start: 20250904, end: 20250904
  8. PEMBROLIZUMAB [Suspect]
     Active Substance: PEMBROLIZUMAB
     Indication: Non-small cell lung cancer
     Dosage: 200 MG, CYCLICAL (EVERY THREE WEEKS)
     Dates: start: 20240220, end: 20250904
  9. PEMBROLIZUMAB [Suspect]
     Active Substance: PEMBROLIZUMAB
     Dosage: 200 MG, CYCLICAL
     Dates: start: 20251002, end: 20251002
  10. CARBOPLATIN [Suspect]
     Active Substance: CARBOPLATIN
     Indication: Non-small cell lung cancer
     Dosage: 200 MG, CYCLICAL
     Route: 042
     Dates: start: 20240220, end: 20240220
  11. CARBOPLATIN [Suspect]
     Active Substance: CARBOPLATIN
     Dosage: 430 MG, CYCLICAL
     Route: 042
     Dates: start: 20240312, end: 20240312
  12. CARBOPLATIN [Suspect]
     Active Substance: CARBOPLATIN
     Dosage: 470 MG, CYCLICAL (EVERY THREE WEEKS)
     Route: 042
     Dates: start: 20240402, end: 20240423
  13. ONDANSETRON [Concomitant]
     Active Substance: ONDANSETRON
     Indication: Prophylaxis
     Dosage: 8 MG, PRN
     Route: 048
     Dates: start: 20240220
  14. OXYCODONE [Concomitant]
     Active Substance: OXYCODONE
     Indication: Prophylaxis
     Dosage: 10 MG, PRN
     Route: 048
     Dates: start: 20240328
  15. ALBUTEROL SULFATE\IPRATROPIUM BROMIDE [Concomitant]
     Active Substance: ALBUTEROL SULFATE\IPRATROPIUM BROMIDE
     Indication: Dyspnoea
     Dosage: 3 DOSAGE FORM, PRN
     Route: 050
     Dates: start: 20240215
  16. ALPRAZOLAM [Concomitant]
     Active Substance: ALPRAZOLAM
     Indication: Anxiety
     Dosage: 0.5 MG, PRN
     Route: 048
     Dates: start: 20141104
  17. DEXAMETHASONE [Concomitant]
     Active Substance: DEXAMETHASONE
     Indication: Back pain
     Dosage: 4 MG, DAILY
     Route: 048
     Dates: start: 20231215
  18. ZOLEDRONIC ACID [Concomitant]
     Active Substance: ZOLEDRONIC ACID
     Indication: Prophylaxis
     Dosage: 4 MG, EVERY 3 MONTHS
     Route: 042
     Dates: start: 20240220
  19. PROCHLORPERAZINE [Concomitant]
     Active Substance: PROCHLORPERAZINE
     Indication: Prophylaxis
     Dosage: 10 MG, PRN
     Route: 048
     Dates: start: 20240220
  20. FOLIC ACID [Concomitant]
     Active Substance: FOLIC ACID
     Indication: Prophylaxis
     Dosage: 1 MG, DAILY
     Route: 048
     Dates: start: 20240220
  21. CALCIUM CARBONATE\CHOLECALCIFEROL [Concomitant]
     Active Substance: CALCIUM CARBONATE\CHOLECALCIFEROL
     Indication: Prophylaxis
     Dosage: 1 DOSAGE FORM, BID
     Route: 048
     Dates: start: 20240220
  22. PALONOSETRON [Concomitant]
     Active Substance: PALONOSETRON
     Indication: Premedication
     Dosage: 250 UG, EVERY THREE WEEKS
     Route: 048
     Dates: start: 20240220
  23. APREPITANT [Concomitant]
     Active Substance: APREPITANT
     Indication: Premedication
     Dosage: 130 MG, EVERY THREE WEEKS
     Route: 042
     Dates: start: 20240220
  24. DEXAMETHASONE [Concomitant]
     Active Substance: DEXAMETHASONE
     Indication: Premedication
     Dosage: 8 MG, EVERY THREE WEEKS
     Route: 042
     Dates: start: 20240220
  25. MONTELUKAST [Concomitant]
     Active Substance: MONTELUKAST
     Indication: Rhinitis allergic
     Dosage: 10 MG, DAILY
     Route: 048
     Dates: start: 20240415
  26. MONTELUKAST [Concomitant]
     Active Substance: MONTELUKAST
     Indication: Hypoxia
  27. TRELEGY ELLIPTA [Concomitant]
     Active Substance: FLUTICASONE FUROATE\UMECLIDINIUM BROMIDE\VILANTEROL TRIFENATATE
     Indication: Rhinitis allergic
     Dosage: 1 DOSAGE FORM, DAILY
     Route: 055
     Dates: start: 20240415
  28. ALBUTEROL [Concomitant]
     Active Substance: ALBUTEROL
     Indication: Dyspnoea
     Dosage: 90 UG, PRN
     Route: 055
     Dates: start: 20150308
  29. METHYLPHENIDATE HYDROCHLORIDE [Concomitant]
     Active Substance: METHYLPHENIDATE HYDROCHLORIDE
     Indication: Fatigue
     Dosage: 5 MG, BID
     Route: 048
     Dates: start: 20240619
  30. BUPRENORPHINE [Concomitant]
     Active Substance: BUPRENORPHINE
     Indication: Back pain
     Dosage: UNK, WEEKLY (1/W)
     Route: 062
     Dates: start: 20240619
  31. DULOXETINE [Concomitant]
     Active Substance: DULOXETINE
     Indication: Back pain
     Dosage: 20 MG, DAILY
     Route: 048
     Dates: start: 20240619
  32. AMLODIPINE [Concomitant]
     Active Substance: AMLODIPINE BESYLATE
     Indication: Hypertension
     Dosage: 5 MG, DAILY
     Route: 048
     Dates: start: 20241119
  33. FUROSEMIDE [Concomitant]
     Active Substance: FUROSEMIDE
     Indication: Oedema peripheral
     Dosage: 20 MG, DAILY
     Route: 048
     Dates: start: 20250717
  34. LEVOTHYROXINE [Concomitant]
     Active Substance: LEVOTHYROXINE
     Indication: Hypothyroidism
     Dosage: 112 UG, DAILY
     Route: 048
     Dates: start: 20250718
  35. DOXYCYCLINE [Concomitant]
     Active Substance: DOXYCYCLINE
     Indication: Wound infection
     Dosage: 100 MG, BID
     Route: 048
     Dates: start: 20250904, end: 20250911

REACTIONS (2)
  - Neutropenia [Recovered/Resolved]
  - Thrombocytopenia [Recovered/Resolved]

NARRATIVE: CASE EVENT DATE: 20250911
